FAERS Safety Report 5624490-1 (Version None)
Quarter: 2008Q1

REPORT INFORMATION
  Report Type: 
  Country: None (occurrence: None)
  Receive Date: 20080211
  Receipt Date: 20080211
  Transmission Date: 20080703
  Serious: Yes (Other)
  Sender: FDA-Public Use
  Company Number: None

PATIENT
  Age: 21 Month
  Sex: Male
  Weight: 9.5255 kg

DRUGS (2)
  1. POLY VI SOL ENFAMIL [Suspect]
     Indication: VITAMIN SUPPLEMENTATION
     Dosage: 1 ML ONCE A DAY PO
     Route: 048
     Dates: start: 19920205, end: 20040206
  2. POLY VI SOL ENFAMIL [Suspect]
     Indication: VITAMIN SUPPLEMENTATION
     Dosage: 1 ML ONCE A DAY PO
     Route: 048
     Dates: start: 20080131, end: 20080202

REACTIONS (1)
  - REACTION TO DRUG EXCIPIENTS [None]
